FAERS Safety Report 7709615-6 (Version None)
Quarter: 2011Q3

REPORT INFORMATION
  Report Type: 
  Country: None (occurrence: None)
  Receive Date: 20110825
  Receipt Date: 20110810
  Transmission Date: 20111222
  Serious: Yes (Death, Hospitalization)
  Sender: FDA-Public Use
  Company Number: US-GLAXOSMITHKLINE-A0873781A

PATIENT
  Age: 69 Year
  Sex: Female
  Weight: 96.4 kg

DRUGS (14)
  1. GLIPIZIDE [Concomitant]
  2. VIOXX [Concomitant]
  3. FLEXERIL [Concomitant]
  4. LIPITOR [Concomitant]
  5. ALTACE [Concomitant]
  6. AVANDIA [Suspect]
     Indication: DIABETES MELLITUS
     Dosage: 8MG PER DAY
     Route: 048
     Dates: start: 20000101, end: 20040101
  7. GLUCOPHAGE [Concomitant]
  8. ALBUTEROL SULFATE AUTOHALER [Concomitant]
  9. LITHIUM CARBONATE [Concomitant]
  10. LASIX [Concomitant]
  11. ALLEGRA [Concomitant]
  12. DARVOCET [Concomitant]
  13. ZIAC [Concomitant]
  14. PREVACID [Concomitant]

REACTIONS (4)
  - CEREBROVASCULAR ACCIDENT [None]
  - CARDIAC FAILURE CONGESTIVE [None]
  - DEATH [None]
  - MYOCARDIAL INFARCTION [None]
